FAERS Safety Report 21803071 (Version 1)
Quarter: 2022Q4

REPORT INFORMATION
  Report Type: Report from Study
  Country: US (occurrence: US)
  Receive Date: 20221231
  Receipt Date: 20221231
  Transmission Date: 20230112
  Serious: No
  Sender: FDA-Public Use
  Company Number: US-ACORDA-ACO_174076_2022

PATIENT
  Age: 67 Year
  Sex: Female

DRUGS (2)
  1. INBRIJA [Suspect]
     Active Substance: LEVODOPA
     Indication: Parkinson^s disease
     Dosage: 84 MILLIGRAM, PRN, NOT TO EXCEED 5 DOSES PER DAY
     Dates: start: 20221128, end: 20221128
  2. INBRIJA [Suspect]
     Active Substance: LEVODOPA
     Indication: On and off phenomenon

REACTIONS (9)
  - Sneezing [Recovered/Resolved]
  - Movement disorder [Unknown]
  - Product residue present [Unknown]
  - Feeling abnormal [Recovered/Resolved]
  - Peripheral coldness [Recovered/Resolved]
  - Device use issue [Unknown]
  - Intentional underdose [Unknown]
  - Dizziness [Recovered/Resolved]
  - Cough [Not Recovered/Not Resolved]

NARRATIVE: CASE EVENT DATE: 20221128
